FAERS Safety Report 8131251-0 (Version None)
Quarter: 2012Q1

REPORT INFORMATION
  Report Type: 
  Country: None (occurrence: None)
  Receive Date: 20120103
  Receipt Date: 20110918
  Transmission Date: 20120608
  Serious: No
  Sender: FDA-Public Use
  Company Number: AE-2011-001653

PATIENT
  Age: 45 Year
  Sex: Female
  Weight: 98.8842 kg

DRUGS (9)
  1. TRAZODONE HCL [Concomitant]
  2. BUSPAR [Concomitant]
  3. PROZAC [Concomitant]
  4. LISINOPRIL [Concomitant]
  5. ISORDIL [Concomitant]
  6. PEGINTERFERON (PEGINTERFERON ALFA-2A) [Concomitant]
  7. RIBAVIRIN [Concomitant]
  8. KLONOPIN [Concomitant]
  9. INCIVEK [Suspect]
     Dosage: 2250 MG (750 MG,3 IN 1 D),ORAL
     Route: 048
     Dates: start: 20110913

REACTIONS (2)
  - RASH MACULAR [None]
  - PRURITUS [None]
